FAERS Safety Report 19836466 (Version 2)
Quarter: 2021Q4

REPORT INFORMATION
  Report Type: Spontaneous
  Country: US (occurrence: US)
  Receive Date: 20210914
  Receipt Date: 20211217
  Transmission Date: 20220303
  Serious: No
  Sender: FDA-Public Use
  Company Number: US-SK LIFE SCIENCE, INC.-SKPVG-2021-000836

PATIENT

DRUGS (29)
  1. XCOPRI [Suspect]
     Active Substance: CENOBAMATE
     Indication: Epilepsy
     Dosage: 12.5 MILLIGRAM, QD, (12.5MG/25MG BLISTER PACK)
     Route: 048
     Dates: start: 20210317
  2. XCOPRI [Suspect]
     Active Substance: CENOBAMATE
     Indication: Seizure
     Dosage: 25 MILLIGRAM, QD, (12.5MG/25MG PACK)
     Route: 048
     Dates: start: 202104, end: 20210517
  3. XCOPRI [Suspect]
     Active Substance: CENOBAMATE
     Dosage: 12.5 MILLIGRAM (12.5MG/25MG TITRATION PACK), QD DAILY MORNING
     Route: 048
     Dates: start: 20210909
  4. XCOPRI [Suspect]
     Active Substance: CENOBAMATE
     Dosage: 25 MILLIGRAM (DAY 16)
     Route: 048
     Dates: start: 202109
  5. XCOPRI [Suspect]
     Active Substance: CENOBAMATE
     Dosage: 50 MILLIGRAM, QD, IN THE MORNING (50MG/100MG TITRATION PACK)
     Route: 048
     Dates: start: 20211009
  6. XCOPRI [Suspect]
     Active Substance: CENOBAMATE
     Dosage: 100 MILLIGRAM
     Route: 048
     Dates: start: 20211024
  7. XCOPRI [Suspect]
     Active Substance: CENOBAMATE
     Dosage: 200 MILLIGRAM, QHS
     Route: 048
     Dates: start: 20211027, end: 20211110
  8. CLOBAZAM [Suspect]
     Active Substance: CLOBAZAM
     Indication: Product used for unknown indication
     Dosage: 10 MILLIGRAM, QHS (NIGHT), 1 TABLET
     Route: 065
     Dates: start: 202108
  9. ZONEGRAN [Suspect]
     Active Substance: ZONISAMIDE
     Indication: Product used for unknown indication
     Dosage: 100 MILLIGRAM, QHS (THREE TABLETS AT NIGHT)
     Route: 065
  10. ZONEGRAN [Suspect]
     Active Substance: ZONISAMIDE
     Dosage: 2 TAB, AT NIGHT
     Route: 065
  11. ZONEGRAN [Suspect]
     Active Substance: ZONISAMIDE
     Dosage: 1 TAB
     Route: 065
     Dates: start: 20210901
  12. ZONEGRAN [Suspect]
     Active Substance: ZONISAMIDE
     Dosage: 100 MILLIGRAM
     Route: 065
  13. DILANTIN [Suspect]
     Active Substance: PHENYTOIN
     Indication: Product used for unknown indication
     Dosage: 100 MILLIGRAM, BID, TWO PILLS
     Route: 065
  14. DILANTIN [Suspect]
     Active Substance: PHENYTOIN
     Dosage: 400 MILLIGRAM
  15. DILANTIN [Suspect]
     Active Substance: PHENYTOIN
     Dosage: 350 MILLIGRAM
  16. PHENOBARBITAL [Concomitant]
     Active Substance: PHENOBARBITAL
     Indication: Product used for unknown indication
     Dosage: 600 MILLIGRAM, (2 PILLS PER DAY)
     Route: 065
  17. PHENOBARBITAL [Concomitant]
     Active Substance: PHENOBARBITAL
     Dosage: 60 MILLIGRAM, QD
     Route: 065
  18. PHENOBARBITAL [Concomitant]
     Active Substance: PHENOBARBITAL
     Dosage: 120 MILLIGRAM
     Route: 065
  19. SERTRALINE [Concomitant]
     Active Substance: SERTRALINE HYDROCHLORIDE
     Indication: Product used for unknown indication
     Dosage: 100 MILLIGRAM, QD
     Route: 065
  20. PANTOPRAZOLE [Concomitant]
     Active Substance: PANTOPRAZOLE
     Indication: Product used for unknown indication
     Dosage: 20 MILLIGRAM, QD
     Route: 065
  21. PRAVASTATIN [Concomitant]
     Active Substance: PRAVASTATIN
     Indication: Product used for unknown indication
     Dosage: 20 MILLIGRAM, QD
     Route: 065
  22. CANNABIDIOL [Concomitant]
     Active Substance: CANNABIDIOL
     Indication: Product used for unknown indication
     Dosage: PRN (CBD OIL AS NEEDED)
     Route: 065
  23. TELMISARTAN AND HYDROCHLOROTHIAZIDE [Concomitant]
     Active Substance: HYDROCHLOROTHIAZIDE\TELMISARTAN
     Indication: Product used for unknown indication
     Dosage: UNK, QD
     Route: 065
  24. DEPAKOTE [Concomitant]
     Active Substance: DIVALPROEX SODIUM
     Indication: Product used for unknown indication
     Dosage: ER
     Route: 065
  25. TRILEPTAL [Concomitant]
     Active Substance: OXCARBAZEPINE
     Indication: Product used for unknown indication
     Route: 065
  26. VIMPAT [Concomitant]
     Active Substance: LACOSAMIDE
     Indication: Product used for unknown indication
     Route: 065
  27. LAMICTAL [Concomitant]
     Active Substance: LAMOTRIGINE
     Indication: Product used for unknown indication
     Route: 065
  28. TOPAMAX [Concomitant]
     Active Substance: TOPIRAMATE
     Indication: Product used for unknown indication
     Route: 065
  29. KEPPRA [Concomitant]
     Active Substance: LEVETIRACETAM
     Indication: Product used for unknown indication
     Route: 065

REACTIONS (14)
  - Product availability issue [Recovered/Resolved]
  - Therapy interrupted [Recovered/Resolved]
  - Lacrimation increased [Not Recovered/Not Resolved]
  - Dyskinesia [Not Recovered/Not Resolved]
  - Burning sensation [Recovering/Resolving]
  - Anticonvulsant drug level increased [Recovering/Resolving]
  - Balance disorder [Not Recovered/Not Resolved]
  - Constipation [Recovered/Resolved]
  - Decreased appetite [Recovered/Resolved]
  - Fatigue [Not Recovered/Not Resolved]
  - Somnolence [Recovering/Resolving]
  - Diarrhoea [Recovered/Resolved]
  - Visual impairment [Recovered/Resolved]
  - Tremor [Recovering/Resolving]

NARRATIVE: CASE EVENT DATE: 20210518
